FAERS Safety Report 24010067 (Version 2)
Quarter: 2024Q3

REPORT INFORMATION
  Report Type: Spontaneous
  Country: US (occurrence: US)
  Receive Date: 20240625
  Receipt Date: 20240702
  Transmission Date: 20241016
  Serious: No
  Sender: TRIS PHARM
  Company Number: US-TRIS PHARMA, INC.-24US011546

PATIENT

DRUGS (1)
  1. QUILLIVANT XR [Suspect]
     Active Substance: METHYLPHENIDATE HYDROCHLORIDE
     Indication: Anxiety
     Dosage: 5 MILLILITRE

REACTIONS (6)
  - Condition aggravated [Unknown]
  - Off label use [Unknown]
  - Contraindicated product administered [Unknown]
  - Dyspnoea [Unknown]
  - Syncope [Unknown]
  - Chest pain [Unknown]
